FAERS Safety Report 4951331-8 (Version None)
Quarter: 2006Q1

REPORT INFORMATION
  Report Type: 
  Country: None (occurrence: None)
  Receive Date: 20060317
  Receipt Date: 20060227
  Transmission Date: 20060701
  Serious: Yes (Hospitalization, Other)
  Sender: FDA-Public Use
  Company Number: US200602005458

PATIENT
  Age: 38 Year
  Sex: Male

DRUGS (2)
  1. ZYPREXA [Suspect]
     Indication: LEARNING DISORDER
     Dosage: 5 MG, 3/D
     Dates: start: 20040101
  2. LITHIUM [Concomitant]

REACTIONS (4)
  - DYSPHAGIA [None]
  - LETHARGY [None]
  - PNEUMONIA ASPIRATION [None]
  - SURGERY [None]
